FAERS Safety Report 20962223 (Version 1)
Quarter: 2022Q2

REPORT INFORMATION
  Report Type: Spontaneous
  Country: US (occurrence: None)
  Receive Date: 20220614
  Receipt Date: 20220614
  Transmission Date: 20220721
  Serious: Yes (Other)
  Sender: FDA-Public Use
  Company Number: None

PATIENT
  Age: 54 Year
  Sex: Female
  Weight: 74.25 kg

DRUGS (1)
  1. LOSARTAN POTASSIUM AND HYDROCHLOROTHIAZIDE [Suspect]
     Active Substance: HYDROCHLOROTHIAZIDE\LOSARTAN POTASSIUM
     Indication: Blood pressure increased
     Dosage: OTHER QUANTITY : 1 TABLET(S);?
     Route: 048
     Dates: end: 20220613

REACTIONS (2)
  - Chest discomfort [None]
  - Product substitution issue [None]

NARRATIVE: CASE EVENT DATE: 20220613
